FAERS Safety Report 21157263 (Version 1)
Quarter: 2022Q3

REPORT INFORMATION
  Report Type: Spontaneous
  Country: US (occurrence: None)
  Receive Date: 20220729
  Receipt Date: 20220729
  Transmission Date: 20221026
  Serious: Yes (Other)
  Sender: FDA-Public Use
  Company Number: None

PATIENT
  Age: 53 Year
  Sex: Female

DRUGS (7)
  1. PRIFTIN [Suspect]
     Active Substance: RIFAPENTINE
     Indication: Latent tuberculosis
     Dosage: OTHER FREQUENCY : WEEKLY?
     Route: 048
  2. ISONIAZID [Suspect]
     Active Substance: ISONIAZID
     Indication: Latent tuberculosis
     Dosage: OTHER FREQUENCY : WEEKLY;?
     Route: 048
  3. METOPROLOL [Concomitant]
     Active Substance: METOPROLOL
  4. ATORVASTATIN [Concomitant]
     Active Substance: ATORVASTATIN
  5. ALLOPURINOL [Concomitant]
     Active Substance: ALLOPURINOL
  6. OMEPRAZOLE [Concomitant]
     Active Substance: OMEPRAZOLE
  7. maxalt PRN [Concomitant]

REACTIONS (8)
  - Myalgia [None]
  - Headache [None]
  - Fatigue [None]
  - Pyrexia [None]
  - Leukopenia [None]
  - Thrombocytopenia [None]
  - Liver function test increased [None]
  - C-reactive protein increased [None]

NARRATIVE: CASE EVENT DATE: 20220728
